FAERS Safety Report 12165880 (Version 2)
Quarter: 2016Q1

REPORT INFORMATION
  Report Type: Spontaneous
  Country: US (occurrence: US)
  Receive Date: 20160309
  Receipt Date: 20160329
  Transmission Date: 20160526
  Serious: Yes (Hospitalization, Other)
  Sender: FDA-Public Use
  Company Number: US-BAYER-2016-039679

PATIENT
  Age: 34 Year
  Sex: Female
  Weight: 68.27 kg

DRUGS (1)
  1. ALKA-SELTZER PLUS COLD AND COUGH FORMULA [Suspect]
     Active Substance: ACETAMINOPHEN\CHLORPHENIRAMINE MALEATE\DEXTROMETHORPHAN HYDROBROMIDE\PHENYLEPHRINE HYDROCHLORIDE
     Indication: NASOPHARYNGITIS
     Dosage: 2 DF, BID
     Route: 048
     Dates: start: 201512, end: 201512

REACTIONS (3)
  - Jaundice [None]
  - Chromaturia [None]
  - Hepatic enzyme increased [None]

NARRATIVE: CASE EVENT DATE: 201512
